FAERS Safety Report 6340728-X (Version None)
Quarter: 2009Q3

REPORT INFORMATION
  Report Type: 
  Country: None (occurrence: None)
  Receive Date: 20090904
  Receipt Date: 20090826
  Transmission Date: 20100115
  Serious: Yes (Other)
  Sender: FDA-Public Use
  Company Number: BR-JNJFOC-20090809503

PATIENT
  Age: 10 Year
  Sex: Male
  Weight: 35 kg

DRUGS (1)
  1. INVEGA [Suspect]
     Indication: CYTOGENETIC ABNORMALITY
     Route: 048

REACTIONS (6)
  - AGITATION [None]
  - BODY TEMPERATURE INCREASED [None]
  - INSOMNIA [None]
  - MUSCLE TWITCHING [None]
  - NERVOUSNESS [None]
  - SALIVARY HYPERSECRETION [None]
